FAERS Safety Report 9935871 (Version 1)
Quarter: 2014Q1

REPORT INFORMATION
  Report Type: Report from Study
  Country: AR (occurrence: AR)
  Receive Date: 20140228
  Receipt Date: 20140228
  Transmission Date: 20141002
  Serious: Yes (Life-Threatening, Other)
  Sender: FDA-Public Use
  Company Number: PHHY2014AR025127

PATIENT
  Age: 75 Year
  Sex: Female

DRUGS (3)
  1. DIOVAN [Suspect]
     Indication: HYPERTENSION
     Dosage: 1 DF(80MG), PER DAY
     Route: 048
  2. DIOVAN [Suspect]
     Indication: BLOOD GLUCOSE DECREASED
  3. DIOVAN [Suspect]
     Indication: OFF LABEL USE

REACTIONS (1)
  - Blood glucose increased [Not Recovered/Not Resolved]
